FAERS Safety Report 18024345 (Version 1)
Quarter: 2020Q3

REPORT INFORMATION
  Report Type: Spontaneous
  Country: US (occurrence: US)
  Receive Date: 20200714
  Receipt Date: 20200714
  Transmission Date: 20201103
  Serious: No
  Sender: FDA-Public Use
  Company Number: None

PATIENT
  Age: 48 Year
  Sex: Female
  Weight: 63 kg

DRUGS (8)
  1. VITAMIN C GUMMIE [Concomitant]
  2. NORCO [Concomitant]
     Active Substance: ACETAMINOPHEN\HYDROCODONE BITARTRATE
  3. TIZANIDINE. [Concomitant]
     Active Substance: TIZANIDINE
  4. ONE ADAY VITAMIN [Concomitant]
  5. IMITREX [Concomitant]
     Active Substance: SUMATRIPTAN SUCCINATE
  6. PREMARIN [Concomitant]
     Active Substance: ESTROGENS, CONJUGATED
  7. BLUMEN ADVANCED HAND SANITIZER [Suspect]
     Active Substance: ALCOHOL
     Indication: PRODUCT USED FOR UNKNOWN INDICATION
     Dosage: ?          QUANTITY:3.4 ML;?
     Route: 061
  8. GABAPENTIN. [Concomitant]
     Active Substance: GABAPENTIN

REACTIONS (6)
  - Pain in extremity [None]
  - Heart rate increased [None]
  - Blood pressure decreased [None]
  - Dizziness [None]
  - Nausea [None]
  - Insomnia [None]

NARRATIVE: CASE EVENT DATE: 20200714
